FAERS Safety Report 5093406-1 (Version None)
Quarter: 2006Q3

REPORT INFORMATION
  Report Type: 
  Country: None (occurrence: None)
  Receive Date: 20060828
  Receipt Date: 20060810
  Transmission Date: 20061208
  Serious: Yes (Death, Hospitalization, Other)
  Sender: FDA-Public Use
  Company Number: 2006RR-03393

PATIENT
  Age: 79 Year
  Sex: Male

DRUGS (1)
  1. FLUCONAZOLE [Suspect]
     Indication: ARTHRITIS BACTERIAL
     Dosage: 400 MG, QD, INTRAVENOUS
     Route: 042

REACTIONS (4)
  - ARTHRITIS FUNGAL [None]
  - CANDIDIASIS [None]
  - DRUG RESISTANCE [None]
  - HAEMORRHAGE [None]
